FAERS Safety Report 16200359 (Version 1)
Quarter: 2019Q2

REPORT INFORMATION
  Report Type: Spontaneous
  Country: MY (occurrence: MY)
  Receive Date: 20190416
  Receipt Date: 20190416
  Transmission Date: 20190711
  Serious: Yes (Other)
  Sender: FDA-Public Use
  Company Number: MY-LUPIN PHARMACEUTICALS INC.-2018-08960

PATIENT
  Age: 17 Year
  Sex: Female

DRUGS (21)
  1. LEVOFLOXACIN. [Suspect]
     Active Substance: LEVOFLOXACIN
     Dosage: RE-CHALLENGE
     Route: 065
  2. ISONIAZID. [Suspect]
     Active Substance: ISONIAZID
     Dosage: SPLIT DOSAGE ON THE SECOND TO THIRD DAY
     Route: 065
  3. PREDNISOLONE. [Concomitant]
     Active Substance: PREDNISOLONE
     Indication: SYSTEMIC SCLERODERMA
  4. RIFAMPIN. [Suspect]
     Active Substance: RIFAMPIN
     Dosage: RE-CHALLENGE
     Route: 065
  5. ISONIAZID. [Suspect]
     Active Substance: ISONIAZID
     Dosage: SMALL INCREMENTAL DOSAGE ON THE FIRST DAY
     Route: 065
  6. LEVOFLOXACIN. [Suspect]
     Active Substance: LEVOFLOXACIN
     Dosage: SMALL INCREMENTAL DOSAGE ON THE FIRST DAY
     Route: 065
  7. LEVOFLOXACIN. [Suspect]
     Active Substance: LEVOFLOXACIN
     Dosage: SPLIT DOSAGE ON THE SECOND TO THIRD DAY
     Route: 065
  8. LEVOFLOXACIN. [Suspect]
     Active Substance: LEVOFLOXACIN
     Dosage: FULL DOSE ONCE DAILY ON THE FOURTH DAY
     Route: 065
  9. HYDROXYCHLOROQUINE [Concomitant]
     Active Substance: HYDROXYCHLOROQUINE
     Indication: SYSTEMIC SCLERODERMA
  10. RIFAMPIN. [Suspect]
     Active Substance: RIFAMPIN
     Indication: PULMONARY TUBERCULOSIS
     Dosage: UNK
     Route: 065
  11. ISONIAZID. [Suspect]
     Active Substance: ISONIAZID
     Dosage: FULL DOSE ONCE DAILY ON THE FOURTH DAY
     Route: 065
  12. HYDROXYCHLOROQUINE [Concomitant]
     Active Substance: HYDROXYCHLOROQUINE
     Indication: SYSTEMIC LUPUS ERYTHEMATOSUS
     Dosage: UNK
     Route: 065
  13. LEVOFLOXACIN. [Suspect]
     Active Substance: LEVOFLOXACIN
     Indication: PULMONARY TUBERCULOSIS
     Dosage: UNK
     Route: 065
  14. PREDNISOLONE. [Concomitant]
     Active Substance: PREDNISOLONE
     Indication: SYSTEMIC LUPUS ERYTHEMATOSUS
     Dosage: 10 MG, UNK
     Route: 065
  15. RIFAMPIN. [Suspect]
     Active Substance: RIFAMPIN
     Dosage: FULL DOSE ONCE DAILY ON THE FOURTH DAY
     Route: 065
  16. ISONIAZID. [Suspect]
     Active Substance: ISONIAZID
     Indication: PULMONARY TUBERCULOSIS
     Dosage: UNK
     Route: 065
  17. RIFAMPIN. [Suspect]
     Active Substance: RIFAMPIN
     Dosage: SMALL INCREMENTAL DOSAGE ON THE FIRST DAY
     Route: 065
  18. RIFAMPIN. [Suspect]
     Active Substance: RIFAMPIN
     Dosage: SPLIT DOSAGE ON THE SECOND TO THIRD DAY
     Route: 065
  19. AKURIT-4 [Suspect]
     Active Substance: ETHAMBUTOL HYDROCHLORIDE\ISONIAZID\PYRAZINAMIDE\RIFAMYCIN
     Indication: PULMONARY TUBERCULOSIS
     Dosage: UNK
     Route: 065
  20. AKURIT-4 [Suspect]
     Active Substance: ETHAMBUTOL HYDROCHLORIDE\ISONIAZID\PYRAZINAMIDE\RIFAMYCIN
     Dosage: RE-CHALLENGE
     Route: 065
  21. ISONIAZID. [Suspect]
     Active Substance: ISONIAZID
     Dosage: RE-CHALLENGE
     Route: 065

REACTIONS (1)
  - Drug-induced liver injury [Unknown]
